FAERS Safety Report 10013903 (Version 1)
Quarter: 2014Q1

REPORT INFORMATION
  Report Type: Spontaneous
  Country: US (occurrence: US)
  Receive Date: 20140316
  Receipt Date: 20140316
  Transmission Date: 20141002
  Serious: No
  Sender: FDA-Public Use
  Company Number: US-LUNDBECK-DKLU1095660

PATIENT
  Sex: Male

DRUGS (1)
  1. ONFI [Suspect]
     Indication: CONVULSION
     Dates: start: 20130926, end: 20131118

REACTIONS (4)
  - Personality change [Unknown]
  - Stubbornness [Unknown]
  - Abnormal behaviour [Unknown]
  - Aggression [Unknown]
